FAERS Safety Report 8265033-6 (Version None)
Quarter: 2012Q2

REPORT INFORMATION
  Report Type: 
  Country: None (occurrence: None)
  Receive Date: 20120406
  Receipt Date: 20120403
  Transmission Date: 20120825
  Serious: Yes (Death, Hospitalization)
  Sender: FDA-Public Use
  Company Number: PHEH2012US005910

PATIENT
  Age: 89 Year
  Sex: Female

DRUGS (1)
  1. TOBI [Suspect]
     Dosage: 300 MG, BID 28 DAYS ON AND 28 DAYS OFF
     Dates: start: 20110804, end: 20111121

REACTIONS (4)
  - MALNUTRITION [None]
  - LUNG DISORDER [None]
  - INCREASED BRONCHIAL SECRETION [None]
  - DISEASE PROGRESSION [None]
